FAERS Safety Report 6775568-0 (Version None)
Quarter: 2010Q2

REPORT INFORMATION
  Report Type: 
  Country: None (occurrence: None)
  Receive Date: 20100617
  Receipt Date: 20100609
  Transmission Date: 20101027
  Serious: Yes (Hospitalization)
  Sender: FDA-Public Use
  Company Number: JP-ASTRAZENECA-2010SE27824

PATIENT
  Age: 29 Year
  Sex: Male

DRUGS (8)
  1. SEROQUEL [Suspect]
     Route: 048
     Dates: start: 20100416, end: 20100513
  2. LITHIUM CARBONATE CAP [Concomitant]
     Route: 048
  3. DEPAS [Concomitant]
     Route: 048
  4. VEGETAMIN B [Concomitant]
     Route: 048
  5. SOMELIN [Concomitant]
     Route: 048
  6. LENDORMIN [Concomitant]
     Route: 048
  7. LEVOTOMIN [Concomitant]
     Route: 048
  8. HIBERNA [Concomitant]
     Route: 048
     Dates: start: 20100416, end: 20100513

REACTIONS (2)
  - BONE MARROW FAILURE [None]
  - GRANULOCYTOPENIA [None]
